FAERS Safety Report 21687115 (Version 1)
Quarter: 2022Q4

REPORT INFORMATION
  Report Type: Spontaneous
  Country: CA (occurrence: CA)
  Receive Date: 20221206
  Receipt Date: 20221206
  Transmission Date: 20230113
  Serious: Yes (Other)
  Sender: FDA-Public Use
  Company Number: CA-009507513-1803CAN006677

PATIENT
  Age: 22 Year
  Sex: Female

DRUGS (7)
  1. SINGULAIR [Suspect]
     Active Substance: MONTELUKAST SODIUM
     Indication: Product used for unknown indication
     Dosage: 10 MG, QD
     Route: 048
  2. BREO ELLIPTA [Suspect]
     Active Substance: FLUTICASONE FUROATE\VILANTEROL TRIFENATATE
     Indication: Product used for unknown indication
     Dosage: 200 MICROGRAM, QD, FORM AND ROUTE: INHALATION
  3. XOLAIR [Suspect]
     Active Substance: OMALIZUMAB
     Indication: Asthma
     Dosage: 300 MG, UNK, FORM: POWDER FOR SOLUTION SUBCUTANEOUS
     Route: 058
     Dates: start: 20170712
  4. XOLAIR [Suspect]
     Active Substance: OMALIZUMAB
     Indication: Asthma
  5. XOLAIR [Suspect]
     Active Substance: OMALIZUMAB
     Indication: Asthma
     Dosage: UNK
     Route: 058
  6. XOLAIR [Suspect]
     Active Substance: OMALIZUMAB
     Dosage: UNK
     Route: 058
  7. VENTOLIN [Concomitant]
     Active Substance: ALBUTEROL SULFATE
     Indication: Product used for unknown indication
     Dosage: UNK
     Route: 065

REACTIONS (16)
  - Aspergillus infection [Recovering/Resolving]
  - Asthma [Recovering/Resolving]
  - Dyspnoea exertional [Recovering/Resolving]
  - Exercise tolerance decreased [Recovering/Resolving]
  - Fear of injection [Recovering/Resolving]
  - Gastrooesophageal reflux disease [Recovering/Resolving]
  - Injection site pain [Recovering/Resolving]
  - Mycotic allergy [Recovering/Resolving]
  - Nasal inflammation [Recovering/Resolving]
  - Nasal turbinate hypertrophy [Recovering/Resolving]
  - Sensitivity to weather change [Recovering/Resolving]
  - Skin sensitisation [Recovering/Resolving]
  - Skin striae [Recovering/Resolving]
  - Syncope [Recovering/Resolving]
  - Weight increased [Recovering/Resolving]
  - Nasal congestion [Recovering/Resolving]

NARRATIVE: CASE EVENT DATE: 20170113
